FAERS Safety Report 7905942-8 (Version None)
Quarter: 2011Q4

REPORT INFORMATION
  Report Type: 
  Country: None (occurrence: None)
  Receive Date: 20111108
  Receipt Date: 20111026
  Transmission Date: 20120403
  Serious: Yes (Death)
  Sender: FDA-Public Use
  Company Number: 2011AL000070

PATIENT
  Age: 70 Year
  Sex: Male

DRUGS (3)
  1. FOLIC ACID [Concomitant]
  2. FOLOTYN [Suspect]
     Indication: PERIPHERAL T-CELL LYMPHOMA UNSPECIFIED
     Dosage: 30 MG/M**2; ;IV
     Route: 042
     Dates: end: 20110808
  3. CYANOCOBALAMIN [Concomitant]

REACTIONS (2)
  - PENILE ULCERATION [None]
  - HAEMORRHAGE [None]
